FAERS Safety Report 4984402-0 (Version None)
Quarter: 2006Q2

REPORT INFORMATION
  Report Type: 
  Country: None (occurrence: None)
  Receive Date: 20060420
  Receipt Date: 20060407
  Transmission Date: 20061013
  Serious: Yes (Life-Threatening, Other)
  Sender: FDA-Public Use
  Company Number: 2006050031

PATIENT
  Age: 89 Year
  Sex: Male

DRUGS (2)
  1. NEURONTIN [Suspect]
     Indication: POST HERPETIC NEURALGIA
     Dosage: 2400 MG (600 MG, 4 IN 1 D), ORAL
     Route: 048
     Dates: end: 20060126
  2. PALLADONE [Concomitant]

REACTIONS (3)
  - CHEYNE-STOKES RESPIRATION [None]
  - SIMPLE PARTIAL SEIZURES [None]
  - SOMNOLENCE [None]
